FAERS Safety Report 14881274 (Version 1)
Quarter: 2018Q2

REPORT INFORMATION
  Report Type: Spontaneous
  Country: PT (occurrence: PT)
  Receive Date: 20180511
  Receipt Date: 20180511
  Transmission Date: 20180711
  Serious: Yes (Other)
  Sender: FDA-Public Use
  Company Number: PHHY2018PT006448

PATIENT
  Age: 41 Year
  Sex: Male

DRUGS (1)
  1. IBUPROFEN. [Suspect]
     Active Substance: IBUPROFEN
     Indication: ARTHRALGIA
     Dosage: 1 DF, TOTAL
     Route: 048
     Dates: start: 2014, end: 2014

REACTIONS (1)
  - Face oedema [Recovered/Resolved]

NARRATIVE: CASE EVENT DATE: 2014
